FAERS Safety Report 5816313-2 (Version None)
Quarter: 2008Q3

REPORT INFORMATION
  Report Type: 
  Country: None (occurrence: None)
  Receive Date: 20080721
  Receipt Date: 20080707
  Transmission Date: 20090109
  Serious: Yes (Death, Other)
  Sender: FDA-Public Use
  Company Number: FR-BAYER-200821784GPV

PATIENT
  Age: 89 Year
  Sex: Male

DRUGS (9)
  1. CIFLOX [Suspect]
     Indication: DIABETIC FOOT
     Dosage: TOTAL DAILY DOSE: 400 MG
     Route: 048
     Dates: start: 20080206, end: 20080304
  2. FORTUM [Suspect]
     Indication: DIABETIC FOOT
     Dosage: TOTAL DAILY DOSE: 4 G
     Route: 048
     Dates: start: 20080206, end: 20080304
  3. DIAMICRON [Suspect]
     Indication: DIABETES MELLITUS
     Route: 048
     Dates: end: 20080305
  4. DISCOTRINE [Suspect]
     Indication: ANGINA PECTORIS
     Route: 003
     Dates: end: 20080516
  5. INIPOMP [Suspect]
     Indication: HYPERTENSION
     Route: 048
     Dates: end: 20080516
  6. LASIX [Suspect]
     Indication: HYPERTENSION
     Route: 048
     Dates: end: 20080516
  7. ORBENINE [Concomitant]
     Indication: DIABETIC FOOT
     Route: 065
     Dates: start: 20080112, end: 20080122
  8. AUGMENTIN '125' [Concomitant]
     Indication: DIABETIC FOOT
     Route: 065
     Dates: start: 20080122, end: 20080206
  9. OFLOCET [Concomitant]
     Indication: DIABETIC FOOT
     Route: 065
     Dates: start: 20080122, end: 20080206

REACTIONS (5)
  - HAEMORRHAGIC DISORDER [None]
  - HALLUCINATION [None]
  - HEPATITIS CHOLESTATIC [None]
  - MYOCARDIAL ISCHAEMIA [None]
  - RENAL FAILURE ACUTE [None]
